FAERS Safety Report 6132984-8 (Version None)
Quarter: 2009Q1

REPORT INFORMATION
  Report Type: 
  Country: None (occurrence: None)
  Receive Date: 20090326
  Receipt Date: 20090310
  Transmission Date: 20090719
  Serious: Yes (Disabling, Other)
  Sender: FDA-Public Use
  Company Number: US-PFIZER INC-2007039740

PATIENT
  Sex: Female
  Weight: 77.098 kg

DRUGS (5)
  1. PROVERA [Suspect]
     Indication: MENOPAUSE
     Dosage: 2.5 MG, UNK
     Route: 048
     Dates: start: 19940101, end: 20020101
  2. MEDROXYPROGESTERONE AND MEDROXYPROGESTERONE ACETATE [Suspect]
     Indication: MENOPAUSE
     Dosage: 10 MG, UNK
     Route: 048
     Dates: start: 19940101, end: 20021001
  3. CYCRIN [Suspect]
     Indication: MENOPAUSE
     Dosage: 10 MG, UNK
     Dates: start: 19980101, end: 19990101
  4. PREMARIN [Suspect]
     Indication: MENOPAUSE
     Dosage: UNK
     Dates: start: 19940101, end: 20021001
  5. SYNTHROID [Concomitant]
     Dosage: UNK
     Dates: start: 20010101

REACTIONS (1)
  - BREAST CANCER FEMALE [None]
